FAERS Safety Report 5676052-8 (Version None)
Quarter: 2008Q1

REPORT INFORMATION
  Report Type: 
  Country: None (occurrence: None)
  Receive Date: 20080321
  Receipt Date: 20080314
  Transmission Date: 20080703
  Serious: Yes (Death, Hospitalization)
  Sender: FDA-Public Use
  Company Number: CZ-ABBOTT-07P-217-0369233-02

PATIENT
  Sex: Female
  Weight: 74 kg

DRUGS (11)
  1. HUMIRA [Suspect]
     Indication: RHEUMATOID ARTHRITIS
     Route: 058
     Dates: start: 20030514, end: 20070501
  2. OMEPRAZOLE [Concomitant]
     Indication: DYSPEPSIA
     Route: 048
     Dates: start: 20050922, end: 20070630
  3. LOSARTAN POTASSIUM [Concomitant]
     Indication: HYPERTENSION
     Route: 048
     Dates: start: 20050922, end: 20070630
  4. IBUPROFEN [Concomitant]
     Indication: RHEUMATOID ARTHRITIS
     Route: 061
     Dates: start: 20060511, end: 20070630
  5. ASPIRIN [Concomitant]
     Indication: ISCHAEMIA
     Route: 048
     Dates: start: 20070517, end: 20070630
  6. ASPIRIN [Concomitant]
     Indication: PROPHYLAXIS
  7. PIRACETAM [Concomitant]
     Indication: ISCHAEMIA
     Route: 048
     Dates: start: 20070518, end: 20070630
  8. PIRACETAM [Concomitant]
     Indication: PROPHYLAXIS
  9. AUGMENTIN '125' [Concomitant]
     Indication: URINARY TRACT INFECTION
     Route: 048
     Dates: start: 20070607, end: 20070630
  10. ENOXAPARIN SODIUM [Concomitant]
     Indication: ISCHAEMIA
     Route: 058
     Dates: start: 20070517, end: 20070630
  11. ENOXAPARIN SODIUM [Concomitant]
     Indication: PROPHYLAXIS

REACTIONS (3)
  - BRONCHOPNEUMONIA [None]
  - CEREBRAL ISCHAEMIA [None]
  - FALL [None]
